FAERS Safety Report 20748430 (Version 7)
Quarter: 2024Q3

REPORT INFORMATION
  Report Type: Report from Study
  Country: CA (occurrence: CA)
  Receive Date: 20220426
  Receipt Date: 20240821
  Transmission Date: 20241017
  Serious: No
  Sender: ROCHE
  Company Number: CA-ROCHE-3082009

PATIENT
  Age: 39 Year
  Sex: Female

DRUGS (1)
  1. OCREVUS [Suspect]
     Active Substance: OCRELIZUMAB
     Indication: Relapsing-remitting multiple sclerosis
     Dosage: 300 MG AT DAY 0 AND 14, THEN 600 MG EVERY 6 MONTH
     Route: 042
     Dates: start: 20211208

REACTIONS (9)
  - COVID-19 [Recovered/Resolved]
  - Cough [Recovering/Resolving]
  - Headache [Recovered/Resolved]
  - Fatigue [Not Recovered/Not Resolved]
  - Sneezing [Unknown]
  - Diarrhoea [Unknown]
  - Hypoaesthesia [Recovered/Resolved]
  - Abdominal distension [Recovered/Resolved]
  - Abdominal pain upper [Recovered/Resolved]

NARRATIVE: CASE EVENT DATE: 20220501
